FAERS Safety Report 10143598 (Version 1)
Quarter: 2014Q2

REPORT INFORMATION
  Report Type: Spontaneous
  Country: IN (occurrence: IN)
  Receive Date: 20140430
  Receipt Date: 20140430
  Transmission Date: 20141212
  Serious: Yes (Life-Threatening, Hospitalization, Other)
  Sender: FDA-Public Use
  Company Number: IN-ROXANE LABORATORIES, INC.-2014-RO-00668RO

PATIENT
  Age: 67 Year
  Sex: Female

DRUGS (7)
  1. PERINDOPRIL ERBUMINE [Suspect]
     Indication: PRODUCT USED FOR UNKNOWN INDICATION
     Dosage: 4 MG
     Route: 065
  2. TORSEMIDE [Suspect]
     Indication: PRODUCT USED FOR UNKNOWN INDICATION
     Dosage: 10 MG
     Route: 065
  3. LACTULOSE SOLUTION USP, 10 G/15 ML [Suspect]
     Indication: CONSTIPATION PROPHYLAXIS
     Route: 065
  4. INSULIN [Suspect]
     Indication: DIABETES MELLITUS
     Route: 065
  5. OLMESARTAN [Suspect]
     Indication: PRODUCT USED FOR UNKNOWN INDICATION
     Dosage: 20 MG
     Route: 065
  6. CALCIUM POLYSTYRENE SULFONATE [Suspect]
     Indication: HYPERKALAEMIA
     Route: 065
  7. MAGNESIUM SULFATE [Suspect]
     Indication: CONSTIPATION PROPHYLAXIS
     Route: 065

REACTIONS (3)
  - Hyperkalaemia [Recovered/Resolved]
  - Paralysis [Recovered/Resolved]
  - Blood pressure decreased [Unknown]
